FAERS Safety Report 11801268 (Version 1)
Quarter: 2015Q4

REPORT INFORMATION
  Report Type: Spontaneous
  Country: US (occurrence: US)
  Receive Date: 20151204
  Receipt Date: 20151204
  Transmission Date: 20160305
  Serious: No
  Sender: FDA-Public Use
  Company Number: US-PFIZER INC-2015408564

PATIENT
  Sex: Male
  Weight: 100 kg

DRUGS (1)
  1. GABAPENTIN. [Suspect]
     Active Substance: GABAPENTIN
     Indication: NERVE INJURY
     Dosage: 400 MG, 3X/DAY

REACTIONS (3)
  - Visual acuity reduced [Unknown]
  - Vision blurred [Unknown]
  - Drug ineffective for unapproved indication [Unknown]
